FAERS Safety Report 21820808 (Version 2)
Quarter: 2023Q1

REPORT INFORMATION
  Report Type: Report from Study
  Country: US (occurrence: US)
  Receive Date: 20230105
  Receipt Date: 20230106
  Transmission Date: 20230418
  Serious: No
  Sender: FDA-Public Use
  Company Number: US-ABBVIE-4258015

PATIENT
  Sex: Male

DRUGS (1)
  1. VENCLEXTA [Suspect]
     Active Substance: VENETOCLAX
     Indication: Plasma cell myeloma
     Dosage: STRENGTH 100 MG?8 TABLETS BY MOUTH EVERY 24 HOURS
     Route: 048
     Dates: start: 202204

REACTIONS (2)
  - Off label use [Unknown]
  - Abdominal discomfort [Not Recovered/Not Resolved]
